FAERS Safety Report 13737535 (Version 1)
Quarter: 2017Q3

REPORT INFORMATION
  Report Type: Spontaneous
  Country: CL (occurrence: CL)
  Receive Date: 20170710
  Receipt Date: 20170710
  Transmission Date: 20171127
  Serious: Yes (Other)
  Sender: FDA-Public Use
  Company Number: CL-PFIZER INC-2017292168

PATIENT
  Age: 41 Year
  Sex: Female

DRUGS (2)
  1. ALTRULINE [Suspect]
     Active Substance: SERTRALINE HYDROCHLORIDE
     Indication: DEPRESSION
     Dosage: 25 MG, DAILY
     Route: 048
  2. ALTRULINE [Suspect]
     Active Substance: SERTRALINE HYDROCHLORIDE
     Indication: PANIC DISORDER
     Dosage: 50 MG, UNK
     Route: 048

REACTIONS (8)
  - Tachycardia [Recovered/Resolved]
  - Eye contusion [Recovered/Resolved]
  - Loss of control of legs [Recovered/Resolved]
  - Skin discolouration [Recovered/Resolved]
  - Hypersensitivity [Recovering/Resolving]
  - Hyperhidrosis [Recovered/Resolved]
  - Tremor [Recovered/Resolved]
  - Panic attack [Recovered/Resolved]
